FAERS Safety Report 6126252-8 (Version None)
Quarter: 2009Q1

REPORT INFORMATION
  Report Type: 
  Country: None (occurrence: None)
  Receive Date: 20090320
  Receipt Date: 20090311
  Transmission Date: 20090719
  Serious: Yes (Hospitalization)
  Sender: FDA-Public Use
  Company Number: US-ELI_LILLY_AND_COMPANY-US200902001974

PATIENT
  Sex: Female

DRUGS (7)
  1. CYMBALTA [Suspect]
     Indication: ABDOMINAL PAIN
     Dosage: 20 MG, UNK
     Route: 048
     Dates: start: 20081228, end: 20090103
  2. CYMBALTA [Suspect]
     Dosage: 40 MG, DAILY (1/D)
     Route: 048
     Dates: start: 20090104, end: 20090111
  3. CYMBALTA [Suspect]
     Dosage: 60 MG, DAILY (1/D)
     Route: 048
     Dates: start: 20090112, end: 20090126
  4. CYMBALTA [Suspect]
     Dosage: 1 D/F, UNK
     Route: 048
     Dates: start: 20090127
  5. NEUROTIN                           /00949202/ [Concomitant]
     Indication: ABDOMINAL PAIN
     Dosage: 200 MG, 3/D
  6. SINGULAIR [Concomitant]
  7. ZYRTEC [Concomitant]

REACTIONS (5)
  - DYSPHEMIA [None]
  - GAIT DISTURBANCE [None]
  - TIC [None]
  - TREMOR [None]
  - URINARY TRACT INFECTION [None]
